FAERS Safety Report 7311928-7 (Version None)
Quarter: 2011Q1

REPORT INFORMATION
  Report Type: 
  Country: None (occurrence: None)
  Receive Date: 20110215
  Receipt Date: 20110215
  Transmission Date: 20110831
  Serious: Yes (Death)
  Sender: FDA-Public Use
  Company Number: None

PATIENT
  Age: 45 Year
  Sex: Male
  Weight: 57 kg

DRUGS (2)
  1. CIDOFOVIR [Suspect]
     Indication: VIRAEMIA
     Dosage: 200 MG PO
     Route: 048
     Dates: start: 20101208, end: 20110126
  2. CIDOFOVIR [Suspect]
     Indication: BK VIRUS INFECTION
     Dosage: 200 MG PO
     Route: 048
     Dates: start: 20101208, end: 20110126

REACTIONS (9)
  - HAEMORRHAGE [None]
  - ACUTE GRAFT VERSUS HOST DISEASE IN INTESTINE [None]
  - INFECTION [None]
  - URINARY TRACT INFECTION ENTEROCOCCAL [None]
  - HYPOTENSION [None]
  - HYPOXIA [None]
  - REFUSAL OF TREATMENT BY RELATIVE [None]
  - REFUSAL OF TREATMENT BY PATIENT [None]
  - ACUTE MYELOID LEUKAEMIA RECURRENT [None]
